FAERS Safety Report 24156066 (Version 2)
Quarter: 2024Q3

REPORT INFORMATION
  Report Type: Spontaneous
  Country: US (occurrence: US)
  Receive Date: 20240731
  Receipt Date: 20240809
  Transmission Date: 20241017
  Serious: No
  Sender: TEVA
  Company Number: US-TEVA-VS-3223819

PATIENT
  Age: 69 Year

DRUGS (1)
  1. ADDERALL [Suspect]
     Active Substance: AMPHETAMINE ASPARTATE\AMPHETAMINE SULFATE\DEXTROAMPHETAMINE SACCHARATE\DEXTROAMPHETAMINE SULFATE
     Indication: Attention deficit hyperactivity disorder
     Dosage: ADDERALL FOR ADULT ADHD FOR OVER 25 YEARS
     Route: 065
     Dates: start: 1999

REACTIONS (2)
  - Feeling abnormal [Unknown]
  - Therapy change [Unknown]
